FAERS Safety Report 11125872 (Version 2)
Quarter: 2015Q3

REPORT INFORMATION
  Report Type: Spontaneous
  Country: US (occurrence: US)
  Receive Date: 20150520
  Receipt Date: 20150721
  Transmission Date: 20151125
  Serious: Yes (Death)
  Sender: FDA-Public Use
  Company Number: US-GLAXOSMITHKLINE-US2015065678

PATIENT
  Age: 71 Year
  Sex: Male

DRUGS (9)
  1. VESICARE [Concomitant]
     Active Substance: SOLIFENACIN SUCCINATE
  2. SENOKOT [Concomitant]
     Active Substance: SENNOSIDES
  3. IRON [Concomitant]
     Active Substance: IRON
  4. PROCHLORPERAZINE. [Concomitant]
     Active Substance: PROCHLORPERAZINE
  5. VOTRIENT [Suspect]
     Active Substance: PAZOPANIB HYDROCHLORIDE
     Indication: RENAL CANCER
     Dosage: 200 MG, UNK
     Dates: start: 20150325, end: 20150414
  6. MORPHINE [Concomitant]
     Active Substance: MORPHINE
  7. PREDNISONE. [Concomitant]
     Active Substance: PREDNISONE
  8. CITALOPRAM [Concomitant]
     Active Substance: CITALOPRAM HYDROBROMIDE
  9. SIMVASTATIN. [Concomitant]
     Active Substance: SIMVASTATIN

REACTIONS (3)
  - Pre-existing disease [Fatal]
  - Drug ineffective [Unknown]
  - Hospice care [Unknown]

NARRATIVE: CASE EVENT DATE: 20150421
